FAERS Safety Report 8831716 (Version 5)
Quarter: 2013Q2

REPORT INFORMATION
  Report Type: Report from Study
  Country: US (occurrence: US)
  Receive Date: 20121009
  Receipt Date: 20130417
  Transmission Date: 20140414
  Serious: Yes (Hospitalization)
  Sender: FDA-Public Use
  Company Number: US-009507513-1208USA008592

PATIENT
  Age: 77 Year
  Sex: Male
  Weight: 66.21 kg

DRUGS (21)
  1. BLINDED PLACEBO [Suspect]
     Indication: PROPHYLAXIS
     Route: 058
     Dates: start: 20111227, end: 20111227
  2. BLINDED POST TRIAL THERAPY [Suspect]
     Indication: PROPHYLAXIS
     Route: 058
     Dates: start: 20111227, end: 20111227
  3. BLINDED PRE TRIAL THERAPY [Suspect]
     Indication: PROPHYLAXIS
     Route: 058
     Dates: start: 20111227, end: 20111227
  4. BLINDED VARICELLA-ZOSTER VIRUS VACCINE INACTIVATED (OKA/MERCK) [Suspect]
     Indication: PROPHYLAXIS
     Route: 058
     Dates: start: 20111227, end: 20111227
  5. BLINDED PLACEBO [Suspect]
     Route: 058
     Dates: start: 20110929, end: 20110929
  6. BLINDED POST TRIAL THERAPY [Suspect]
     Route: 058
     Dates: start: 20110929, end: 20110929
  7. BLINDED PRE TRIAL THERAPY [Suspect]
     Route: 058
     Dates: start: 20110929, end: 20110929
  8. BLINDED VARICELLA-ZOSTER VIRUS VACCINE INACTIVATED (OKA/MERCK) [Suspect]
     Route: 058
     Dates: start: 20110929, end: 20110929
  9. BLINDED PLACEBO [Suspect]
     Route: 058
     Dates: start: 20111028, end: 20111028
  10. BLINDED POST TRIAL THERAPY [Suspect]
     Route: 058
     Dates: start: 20111028, end: 20111028
  11. BLINDED PRE TRIAL THERAPY [Suspect]
     Route: 058
     Dates: start: 20111028, end: 20111028
  12. BLINDED VARICELLA-ZOSTER VIRUS VACCINE INACTIVATED (OKA/MERCK) [Suspect]
     Route: 058
     Dates: start: 20111028, end: 20111028
  13. BLINDED PLACEBO [Suspect]
     Route: 058
     Dates: start: 20121202, end: 20121202
  14. BLINDED POST TRIAL THERAPY [Suspect]
     Route: 058
     Dates: start: 20121202, end: 20121202
  15. BLINDED PRE TRIAL THERAPY [Suspect]
     Route: 058
     Dates: start: 20121202, end: 20121202
  16. BLINDED VARICELLA-ZOSTER VIRUS VACCINE INACTIVATED (OKA/MERCK) [Suspect]
     Route: 058
     Dates: start: 20121202, end: 20121202
  17. MIRTAZAPINE [Suspect]
     Indication: DEPRESSION
     Dosage: 50 MG, QD
     Route: 048
     Dates: start: 20120605, end: 20120614
  18. AMBIEN [Concomitant]
     Indication: INSOMNIA
     Dosage: 5 MG, QD
     Route: 048
     Dates: start: 201109
  19. FERROUS GLUCONATE [Concomitant]
     Indication: ANAEMIA
     Dosage: 324 MG, QD
     Route: 048
     Dates: start: 20120614
  20. LOVENOX [Concomitant]
     Indication: THROMBOSIS PROPHYLAXIS
     Dosage: 40 MG, QD
     Route: 058
     Dates: start: 20120421, end: 20120617
  21. ZOFRAN [Concomitant]
     Indication: NAUSEA
     Dosage: TOTAL DAILY DOSE 4 MG
     Route: 042
     Dates: start: 20120614, end: 20120617

REACTIONS (1)
  - Encephalopathy [Recovered/Resolved]
